FAERS Safety Report 25878309 (Version 1)
Quarter: 2025Q4

REPORT INFORMATION
  Report Type: Spontaneous
  Country: EU (occurrence: EU)
  Receive Date: 20251003
  Receipt Date: 20251003
  Transmission Date: 20260118
  Serious: Yes (Other)
  Sender: PFIZER
  Company Number: EU-PFIZER INC-PV202500117424

PATIENT
  Sex: Male

DRUGS (2)
  1. LORLATINIB [Suspect]
     Active Substance: LORLATINIB
     Dosage: 100 MG
  2. LORLATINIB [Suspect]
     Active Substance: LORLATINIB
     Dosage: 75 MG

REACTIONS (1)
  - Venous injury [Unknown]
